FAERS Safety Report 15469749 (Version 1)
Quarter: 2018Q4

REPORT INFORMATION
  Report Type: Report from Study
  Country: ES (occurrence: ES)
  Receive Date: 20181005
  Receipt Date: 20181005
  Transmission Date: 20190205
  Serious: Yes (Hospitalization, Other)
  Sender: FDA-Public Use
  Company Number: ES-TEVA-2018-ES-961488

PATIENT
  Age: 92 Year
  Sex: Female

DRUGS (5)
  1. ACFOL 5 MG COMPRIMIDOS , 28 COMPRIMIDOS [Concomitant]
     Dosage: 1-0-0
     Route: 048
     Dates: start: 20170817
  2. ATORVASTATINA (7400A) [Concomitant]
     Active Substance: ATORVASTATIN
     Dosage: 40 MG DIA
     Route: 048
     Dates: start: 20170817
  3. OMEPRAZOL (2141A) [Concomitant]
     Active Substance: OMEPRAZOLE
     Dosage: 20 MG DIA
     Route: 048
     Dates: start: 20170817
  4. ENALAPRIL (2142A) [Suspect]
     Active Substance: ENALAPRIL
     Dosage: 10 MILLIGRAM DAILY; 10 MG DIA
     Route: 048
     Dates: start: 20170817, end: 20171026
  5. PROPANOLOL [Interacting]
     Active Substance: PROPRANOLOL HYDROCHLORIDE
     Dosage: 10 MILLIGRAM DAILY; 10 MG DIA
     Route: 048
     Dates: start: 20170817, end: 20171026

REACTIONS (2)
  - Drug interaction [Unknown]
  - Acute kidney injury [Recovered/Resolved]

NARRATIVE: CASE EVENT DATE: 20171026
